FAERS Safety Report 14604106 (Version 2)
Quarter: 2018Q1

REPORT INFORMATION
  Report Type: Spontaneous
  Country: US (occurrence: US)
  Receive Date: 20180306
  Receipt Date: 20180321
  Transmission Date: 20180509
  Serious: Yes (Other)
  Sender: FDA-Public Use
  Company Number: US-AKORN PHARMACEUTICALS-2018AKN00243

PATIENT
  Sex: Male
  Weight: 77.98 kg

DRUGS (2)
  1. MYORISAN [Suspect]
     Active Substance: ISOTRETINOIN
     Indication: ACNE
     Dosage: 40 MG, 2X/DAY
     Route: 048
     Dates: start: 20171206, end: 20180201
  2. MOMETASONE 0.1% TOPICAL OINTMENT [Concomitant]
     Dosage: UNK

REACTIONS (2)
  - Unevaluable event [Unknown]
  - Mood swings [Recovered/Resolved]
